FAERS Safety Report 20770150 (Version 2)
Quarter: 2022Q2

REPORT INFORMATION
  Report Type: Spontaneous
  Country: US (occurrence: US)
  Receive Date: 20220429
  Receipt Date: 20220504
  Transmission Date: 20220720
  Serious: No
  Sender: FDA-Public Use
  Company Number: US-NOVARTISTESTPH-NVSC2022US099585

PATIENT
  Sex: Male

DRUGS (1)
  1. MEKINIST [Suspect]
     Active Substance: TRAMETINIB DIMETHYL SULFOXIDE
     Indication: Peripheral nervous system neoplasm
     Dosage: 0.5 MG (DAILY MONDAY THROUGH FRIDAY)
     Route: 048
     Dates: start: 202202

REACTIONS (2)
  - Epistaxis [Unknown]
  - Product use in unapproved indication [Unknown]
